FAERS Safety Report 13094469 (Version 2)
Quarter: 2017Q1

REPORT INFORMATION
  Report Type: Spontaneous
  Country: FR (occurrence: FR)
  Receive Date: 20170106
  Receipt Date: 20170117
  Transmission Date: 20170428
  Serious: Yes (Life-Threatening, Other)
  Sender: FDA-Public Use
  Company Number: FR-PFIZER INC-2017001686

PATIENT
  Age: 84 Year
  Sex: Female
  Weight: 68 kg

DRUGS (5)
  1. POLYIONIQUE G5 [Concomitant]
     Active Substance: DEXTROSE\POTASSIUM CHLORIDE\SODIUM CHLORIDE
     Dosage: 1 L, 2X/DAY (EVERY 12 HOURS)
     Route: 041
     Dates: start: 20161130, end: 20161130
  2. EXACYL [Concomitant]
     Active Substance: TRANEXAMIC ACID
     Indication: ORTHOPAEDIC PROCEDURE
     Dosage: 1 G EVERY 30 MINUTES
     Route: 041
     Dates: start: 20161130, end: 20161130
  3. OXYNORM [Concomitant]
     Active Substance: OXYCODONE HYDROCHLORIDE
     Dosage: 3 MG, UNK
     Route: 042
     Dates: start: 20161130, end: 20161130
  4. ATRACURIUM BESILATE [Suspect]
     Active Substance: ATRACURIUM BESYLATE
     Dosage: UNK
     Route: 042
     Dates: start: 20161130, end: 20161130
  5. NAROPEINE [Concomitant]
     Active Substance: ROPIVACAINE HYDROCHLORIDE
     Dosage: 6 MG PER HOUR
     Route: 053
     Dates: start: 20161130, end: 20161130

REACTIONS (5)
  - Wrong drug administered [Recovered/Resolved]
  - Neuromuscular blocking therapy [Recovered/Resolved]
  - Circulatory collapse [Recovered/Resolved]
  - Toxicity to various agents [Unknown]
  - Cyanosis [Recovered/Resolved]

NARRATIVE: CASE EVENT DATE: 20161130
